FAERS Safety Report 4615197-8 (Version None)
Quarter: 2005Q1

REPORT INFORMATION
  Report Type: 
  Country: None (occurrence: None)
  Receive Date: 20050322
  Receipt Date: 20050310
  Transmission Date: 20050727
  Serious: Yes (Hospitalization)
  Sender: FDA-Public Use
  Company Number: PHNR2005AU00645

PATIENT
  Age: 77 Year
  Sex: Female

DRUGS (3)
  1. CALCIUM GLUCONATE [Concomitant]
     Route: 048
  2. FOSAMAX [Concomitant]
  3. FEMARA [Suspect]
     Indication: BREAST CANCER
     Dosage: 2.5 MG, QD
     Route: 048
     Dates: start: 20050304, end: 20050310

REACTIONS (6)
  - DIZZINESS [None]
  - FALL [None]
  - LOSS OF CONSCIOUSNESS [None]
  - METASTASES TO CENTRAL NERVOUS SYSTEM [None]
  - SKULL FRACTURE [None]
  - WRIST FRACTURE [None]
